FAERS Safety Report 11294616 (Version 1)
Quarter: 2015Q2

REPORT INFORMATION
  Report Type: Spontaneous
  Country: US (occurrence: None)
  Receive Date: 20150623
  Receipt Date: 20150623
  Transmission Date: 20150821
  Serious: Yes (Other)
  Sender: FDA-Public Use
  Company Number: RB-66716-2014

PATIENT
  Age: 68 Year
  Sex: Female

DRUGS (2)
  1. GUAIFENESIN W/DEXTROMETHORPHAN 1200 MG (RECKITT BENCKISER) [Suspect]
     Active Substance: DEXTROMETHORPHAN\GUAIFENESIN
     Indication: PRODUCT USED FOR UNKNOWN INDICATION
     Dosage: (1200 MG TOTAL, TOOK LAST ON 04-JUN-2014. ORAL)
     Dates: start: 20140604
  2. NEXIUM [Concomitant]
     Active Substance: ESOMEPRAZOLE MAGNESIUM

REACTIONS (2)
  - Dyspnoea [None]
  - Dyspnoea at rest [None]

NARRATIVE: CASE EVENT DATE: 20140604
